FAERS Safety Report 6762702-1 (Version None)
Quarter: 2010Q2

REPORT INFORMATION
  Report Type: 
  Country: None (occurrence: None)
  Receive Date: 20100609
  Receipt Date: 20100601
  Transmission Date: 20101027
  Serious: Yes (Death, Hospitalization)
  Sender: FDA-Public Use
  Company Number: A0863600A

PATIENT
  Sex: Male

DRUGS (2)
  1. AVANDIA [Suspect]
     Dosage: 1TAB PER DAY
     Dates: start: 20050101, end: 20100508
  2. AMARYL [Concomitant]
     Dosage: 2MG PER DAY
     Dates: start: 20050101, end: 20100514

REACTIONS (2)
  - CARDIAC ARREST [None]
  - CONVULSION [None]
